FAERS Safety Report 5532668-0 (Version None)
Quarter: 2007Q4

REPORT INFORMATION
  Report Type: 
  Country: None (occurrence: None)
  Receive Date: 20071203
  Receipt Date: 20071127
  Transmission Date: 20080405
  Serious: Yes (Life-Threatening, Hospitalization)
  Sender: FDA-Public Use
  Company Number: US-MERCK-0711USA05089

PATIENT
  Age: 80 Year
  Sex: Female

DRUGS (10)
  1. DECADRON [Suspect]
     Indication: MULTIPLE MYELOMA
     Route: 065
     Dates: end: 20060101
  2. REVLIMID [Suspect]
     Indication: MULTIPLE MYELOMA
     Route: 048
     Dates: start: 20061020, end: 20061101
  3. REVLIMID [Suspect]
     Route: 048
     Dates: start: 20060915
  4. MOBIC [Concomitant]
     Indication: ARTHRITIS
     Route: 065
  5. SYNTHROID [Concomitant]
     Indication: HYPOTHYROIDISM
     Route: 065
  6. ZETIA [Concomitant]
     Indication: BLOOD CHOLESTEROL INCREASED
     Route: 048
  7. PREDNISONE [Concomitant]
     Indication: POLYMYALGIA RHEUMATICA
     Route: 065
  8. MIRTAZAPINE [Concomitant]
     Indication: INSOMNIA
     Route: 065
  9. ASPIRIN [Concomitant]
     Indication: THROMBOSIS PROPHYLAXIS
     Route: 048
     Dates: start: 20061001, end: 20061101
  10. CLONAZEPAM [Concomitant]
     Indication: ANXIETY
     Route: 065

REACTIONS (3)
  - ANXIETY [None]
  - PULMONARY EMBOLISM [None]
  - TREMOR [None]
